FAERS Safety Report 11832081 (Version 1)
Quarter: 2015Q4

REPORT INFORMATION
  Report Type: Report from Study
  Country: CA (occurrence: CA)
  Receive Date: 20151214
  Receipt Date: 20151214
  Transmission Date: 20160305
  Serious: Yes (Death)
  Sender: FDA-Public Use
  Company Number: PHHY2015CA162463

PATIENT
  Sex: Male

DRUGS (4)
  1. SANDOSTATIN [Suspect]
     Active Substance: OCTREOTIDE ACETATE
     Indication: CIRRHOSIS ALCOHOLIC
     Dosage: 100 UG, TID, TO CONTINUE FOR 2 WEEKS POST 1ST LAR
     Route: 058
     Dates: start: 201508
  2. SANDOSTATIN LAR DEPOT [Suspect]
     Active Substance: OCTREOTIDE ACETATE
     Indication: HEPATORENAL SYNDROME
     Dosage: 20 MG, QMO, ONCE A MONTH
     Route: 030
     Dates: start: 20150911, end: 20150911
  3. SANDOSTATIN LAR DEPOT [Suspect]
     Active Substance: OCTREOTIDE ACETATE
     Indication: CIRRHOSIS ALCOHOLIC
     Dosage: UNK
     Route: 030
     Dates: start: 201505, end: 201507
  4. SANDOSTATIN [Suspect]
     Active Substance: OCTREOTIDE ACETATE
     Indication: HEPATORENAL SYNDROME

REACTIONS (2)
  - Product use issue [Unknown]
  - Death [Fatal]
